FAERS Safety Report 6976937-6 (Version None)
Quarter: 2010Q3

REPORT INFORMATION
  Report Type: 
  Country: None (occurrence: None)
  Receive Date: 20100910
  Receipt Date: 20100830
  Transmission Date: 20110219
  Serious: Yes (Death)
  Sender: FDA-Public Use
  Company Number: US-PFIZER INC-2010111645

PATIENT
  Age: 48 Year
  Sex: Female

DRUGS (11)
  1. GABAPENTIN [Suspect]
     Dosage: UNK
     Route: 065
  2. LISINOPRIL [Suspect]
     Dosage: UNK
     Route: 065
  3. FENTANYL [Suspect]
     Dosage: UNK
     Route: 062
  4. DULOXETINE [Suspect]
     Dosage: UNK
     Route: 065
  5. MECLIZINE [Suspect]
     Dosage: UNK
     Route: 065
  6. THEOPHYLLINE [Suspect]
     Dosage: UNK
     Route: 065
  7. TEMAZEPAM [Suspect]
     Dosage: UNK
     Route: 065
  8. LORAZEPAM [Suspect]
     Dosage: UNK
     Route: 065
  9. PANTOPRAZOLE [Suspect]
     Dosage: UNK
     Route: 065
  10. HYDROCODONE [Suspect]
     Dosage: UNK
     Route: 065
  11. SALSALATE [Suspect]
     Dosage: UNK
     Route: 065

REACTIONS (1)
  - DRUG TOXICITY [None]
